FAERS Safety Report 6272952-9 (Version None)
Quarter: 2009Q3

REPORT INFORMATION
  Report Type: 
  Country: None (occurrence: None)
  Receive Date: 20090720
  Receipt Date: 20090713
  Transmission Date: 20100115
  Serious: Yes (Hospitalization)
  Sender: FDA-Public Use
  Company Number: IT-BIOGENIDEC-2009BI016157

PATIENT
  Age: 37 Year
  Sex: Female
  Weight: 45 kg

DRUGS (3)
  1. TYSABRI [Suspect]
     Indication: MULTIPLE SCLEROSIS
     Route: 042
     Dates: start: 20081218
  2. MACROGOL [Concomitant]
     Indication: CONSTIPATION
     Dates: start: 20090220
  3. SENNA FOLIA [Concomitant]
     Indication: CONSTIPATION
     Dates: start: 20090220

REACTIONS (1)
  - LOSS OF CONSCIOUSNESS [None]
